FAERS Safety Report 7131999-0 (Version None)
Quarter: 2010Q4

REPORT INFORMATION
  Report Type: 
  Country: None (occurrence: None)
  Receive Date: 20101124
  Receipt Date: 20101124
  Transmission Date: 20110411
  Serious: Yes (Hospitalization)
  Sender: FDA-Public Use
  Company Number: None

PATIENT
  Sex: Female
  Weight: 73.7 kg

DRUGS (5)
  1. NEULASTA [Suspect]
     Indication: HYPERSENSITIVITY
  2. NEULASTA [Suspect]
     Indication: NEUTROPENIA
  3. NEULASTA [Suspect]
     Indication: ODYNOPHAGIA
  4. NEULASTA [Suspect]
     Indication: ORAL CANDIDIASIS
  5. PEG FILGRASTIM [Concomitant]

REACTIONS (5)
  - DRUG HYPERSENSITIVITY [None]
  - NEUTROPENIA [None]
  - ODYNOPHAGIA [None]
  - OROPHARYNGEAL PAIN [None]
  - URTICARIA [None]
